FAERS Safety Report 19762387 (Version 1)
Quarter: 2021Q3

REPORT INFORMATION
  Report Type: Spontaneous
  Country: US (occurrence: US)
  Receive Date: 20210826
  Receipt Date: 20210826
  Transmission Date: 20211014
  Serious: Yes (Death)
  Sender: FDA-Public Use
  Company Number: None

PATIENT
  Age: 61 Year
  Sex: Male

DRUGS (1)
  1. JIVI [Suspect]
     Active Substance: DAMOCTOCOG ALFA PEGOL
     Indication: HAEMOPHILIA
     Dosage: ?          OTHER FREQUENCY:EVERY 4 DAYS;OTHER ROUTE:IV?
     Route: 042
     Dates: start: 20201105, end: 20210710

REACTIONS (1)
  - Colon cancer stage IV [None]
